FAERS Safety Report 14925826 (Version 1)
Quarter: 2018Q2

REPORT INFORMATION
  Report Type: Spontaneous
  Country: US (occurrence: US)
  Receive Date: 20180522
  Receipt Date: 20180522
  Transmission Date: 20180711
  Serious: Yes (Hospitalization)
  Sender: FDA-Public Use
  Company Number: US-ACTELION-A-NJ2018-172191

PATIENT
  Age: 51 Year
  Sex: Female
  Weight: 70.3 kg

DRUGS (2)
  1. REVATIO [Concomitant]
     Active Substance: SILDENAFIL CITRATE
  2. VELETRI [Suspect]
     Active Substance: EPOPROSTENOL
     Indication: PULMONARY ARTERIAL HYPERTENSION
     Dosage: 9.5 NG/KG, PER MIN
     Route: 042

REACTIONS (16)
  - Vomiting [Unknown]
  - Influenza like illness [Unknown]
  - Device use error [Unknown]
  - Headache [Unknown]
  - Pain in jaw [Unknown]
  - Malaise [Unknown]
  - Device occlusion [Unknown]
  - Flushing [Unknown]
  - Pulse abnormal [Unknown]
  - Diarrhoea [Unknown]
  - Hyperhidrosis [Unknown]
  - Dizziness [Unknown]
  - Feeling hot [Unknown]
  - Paraesthesia [Unknown]
  - Catheter site haemorrhage [Unknown]
  - Chills [Unknown]
